FAERS Safety Report 6129194-7 (Version None)
Quarter: 2009Q1

REPORT INFORMATION
  Report Type: 
  Country: None (occurrence: None)
  Receive Date: 20090323
  Receipt Date: 20090323
  Transmission Date: 20090719
  Serious: No
  Sender: FDA-Public Use
  Company Number: None

PATIENT

DRUGS (1)
  1. TRIAMTERENE 37.5 MG [Suspect]
     Dates: start: 20081105, end: 20081106

REACTIONS (4)
  - HEART RATE IRREGULAR [None]
  - PRODUCT QUALITY ISSUE [None]
  - VISION BLURRED [None]
  - VISUAL IMPAIRMENT [None]
